FAERS Safety Report 6864672-4 (Version None)
Quarter: 2010Q3

REPORT INFORMATION
  Report Type: 
  Country: None (occurrence: None)
  Receive Date: 20100720
  Receipt Date: 20100712
  Transmission Date: 20110219
  Serious: Yes (Other)
  Sender: FDA-Public Use
  Company Number: FKO201000287

PATIENT
  Age: 60 Year
  Sex: Female

DRUGS (3)
  1. CARBOPLATIN [Suspect]
     Indication: BREAST CANCER
     Dosage: EVERY 3 WEEKS
  2. DOCETAXEL [Suspect]
     Indication: BREAST CANCER
     Dosage: EVERY 3 WEEKS
  3. TRASTUZUMAB [Concomitant]

REACTIONS (4)
  - BLOOD GLUCOSE DECREASED [None]
  - PANCREATIC PSEUDOCYST [None]
  - PANCREATITIS ACUTE [None]
  - WHITE BLOOD CELL COUNT DECREASED [None]
